FAERS Safety Report 20836362 (Version 1)
Quarter: 2022Q2

REPORT INFORMATION
  Report Type: 
  Country: None (occurrence: None)
  Receive Date: 20220517
  Receipt Date: 20220517
  Transmission Date: 20220721
  Serious: No
  Sender: FDA-Public Use
  Company Number: CA-ROCHE-1561665

PATIENT

DRUGS (17)
  1. XOLAIR [Suspect]
     Active Substance: OMALIZUMAB
     Dates: start: 20150326
  2. XOLAIR [Suspect]
     Active Substance: OMALIZUMAB
     Dates: start: 20160324
  3. XOLAIR [Suspect]
     Active Substance: OMALIZUMAB
     Dates: start: 20160908
  4. XOLAIR [Suspect]
     Active Substance: OMALIZUMAB
     Dates: start: 20161201
  5. XOLAIR [Suspect]
     Active Substance: OMALIZUMAB
     Dates: start: 20161229
  6. XOLAIR [Suspect]
     Active Substance: OMALIZUMAB
     Dates: start: 20161229
  7. XOLAIR [Suspect]
     Active Substance: OMALIZUMAB
     Dates: start: 20171130
  8. XOLAIR [Suspect]
     Active Substance: OMALIZUMAB
     Dates: start: 20180125
  9. XOLAIR [Suspect]
     Active Substance: OMALIZUMAB
     Dates: start: 20180324
  10. XOLAIR [Suspect]
     Active Substance: OMALIZUMAB
     Dates: start: 20190131
  11. XOLAIR [Suspect]
     Active Substance: OMALIZUMAB
     Dates: start: 20190228
  12. XOLAIR [Suspect]
     Active Substance: OMALIZUMAB
     Dates: start: 20190917
  13. XOLAIR [Suspect]
     Active Substance: OMALIZUMAB
     Dates: start: 20191011
  14. XOLAIR [Suspect]
     Active Substance: OMALIZUMAB
  15. XOLAIR [Suspect]
     Active Substance: OMALIZUMAB
  16. CYCLOSPORINE [Suspect]
     Active Substance: CYCLOSPORINE
  17. CODEINE [Suspect]
     Active Substance: CODEINE

REACTIONS (25)
  - Cold urticaria [None]
  - Oropharyngeal pain [None]
  - Peripheral swelling [None]
  - Drug hypersensitivity [None]
  - Circumoral swelling [None]
  - Dysphonia [None]
  - Skin plaque [None]
  - Choking sensation [None]
  - Throat irritation [None]
  - Paraesthesia oral [None]
  - Inappropriate schedule of product administration [None]
  - Hyperthermia [None]
  - Therapeutic product effect incomplete [None]
  - Aphonia [None]
  - Temperature intolerance [None]
  - Paraesthesia [None]
  - Cough [None]
  - Hypersensitivity [None]
  - Oedema peripheral [None]
  - Pain [None]
  - Pain in extremity [None]
  - Urticaria [None]
  - Wrong technique in product usage process [None]
  - Incorrect dose administered [None]
  - Lip pruritus [None]

NARRATIVE: CASE EVENT DATE: 20150327
